FAERS Safety Report 7807208-3 (Version None)
Quarter: 2011Q4

REPORT INFORMATION
  Report Type: 
  Country: None (occurrence: None)
  Receive Date: 20111011
  Receipt Date: 20110928
  Transmission Date: 20120403
  Serious: Yes (Hospitalization, Other)
  Sender: FDA-Public Use
  Company Number: US-BAYER-2011-009941

PATIENT
  Age: 20 Year
  Sex: Female
  Weight: 56.689 kg

DRUGS (16)
  1. YAZ [Suspect]
     Indication: CONTRACEPTION
     Dosage: 1 DF, QD
     Dates: start: 20060724, end: 20070401
  2. DESOGESTREL AND ETHINYL ESTRADIOL [Concomitant]
     Indication: CONTRACEPTION
     Dosage: UNK
     Dates: start: 20070501, end: 20090401
  3. PROTONIX [Concomitant]
  4. PHENADOZ [Concomitant]
     Indication: HYPERSENSITIVITY
     Dosage: UNK
     Dates: start: 20081229
  5. PRILOSEC [Concomitant]
  6. HYDROCODONE BITARTRATE [Concomitant]
     Indication: PAIN
     Dosage: UNK UNK, PRN
     Route: 048
     Dates: start: 20081227, end: 20090101
  7. REQUIP [Concomitant]
     Dosage: UNK
     Dates: start: 20081205
  8. MOTRIN [Concomitant]
  9. YASMIN [Suspect]
     Dosage: 1 DF, QD
     Dates: start: 20060426, end: 20060701
  10. NAPROXEN [Concomitant]
     Dosage: 500 MG, UNK
     Route: 048
  11. OMEPRAZOLE [Concomitant]
     Dosage: 20 MG, UNK
     Route: 048
  12. PANTOPRAZOLE [Concomitant]
     Dosage: 40 MG, UNK
  13. ZANTAC [Concomitant]
  14. YASMIN [Suspect]
     Indication: CONTRACEPTION
     Dosage: UNK
     Dates: start: 20060124, end: 20060701
  15. DROSPIRENONE AND ETHINYL ESTRADIOL [Suspect]
     Indication: CONTRACEPTION
     Dosage: 1 DF, QD
     Dates: start: 20090421, end: 20090601
  16. VICODIN [Concomitant]
     Dosage: 500 MG, PRN
     Route: 048

REACTIONS (5)
  - PANCREATOLITHIASIS [None]
  - CHOLECYSTITIS CHRONIC [None]
  - GALLBLADDER DISORDER [None]
  - ABDOMINAL PAIN [None]
  - NEPHROLITHIASIS [None]
